FAERS Safety Report 23245617 (Version 1)
Quarter: 2023Q4

REPORT INFORMATION
  Report Type: Report from Study
  Country: CA (occurrence: CA)
  Receive Date: 20231130
  Receipt Date: 20231130
  Transmission Date: 20240109
  Serious: Yes (Other)
  Sender: FDA-Public Use
  Company Number: None

PATIENT
  Sex: Female

DRUGS (16)
  1. MYCOPHENOLIC ACID [Suspect]
     Active Substance: MYCOPHENOLIC ACID
     Indication: Product used for unknown indication
  2. ACTEMRA [Suspect]
     Active Substance: TOCILIZUMAB
     Indication: Uveitis
     Dosage: 1 EVERY 4 WEEKS
     Route: 042
  3. ADALIMUMAB [Concomitant]
     Active Substance: ADALIMUMAB\ISOPROPYL ALCOHOL
     Route: 065
  4. AZATHIOPRINE [Concomitant]
     Active Substance: AZATHIOPRINE
  5. BRIMONIDINE [Concomitant]
     Active Substance: BRIMONIDINE TARTRATE
  6. CALCIUM [Concomitant]
     Active Substance: CALCIUM
  7. DEXAMETHASONE [Concomitant]
     Active Substance: DEXAMETHASONE
  8. FOLIC ACID [Concomitant]
     Active Substance: FOLIC ACID
  9. HUMIRA [Concomitant]
     Active Substance: ADALIMUMAB
     Dosage: SOLUTION SUBCUTANEOUS
     Route: 065
  10. HYALURONATE SODIUM [Concomitant]
     Active Substance: HYALURONATE SODIUM
  11. METHOTREXATE [Concomitant]
     Active Substance: METHOTREXATE
     Route: 048
  12. MOXIFLOXACIN [Concomitant]
     Active Substance: MOXIFLOXACIN
  13. NEVANAC [Concomitant]
     Active Substance: NEPAFENAC
  14. OMEGA 3 FISH [Concomitant]
  15. PREDNISOLONE [Concomitant]
     Active Substance: PREDNISOLONE
  16. PREDNISONE [Concomitant]
     Active Substance: PREDNISONE

REACTIONS (1)
  - Eye disorder [Unknown]
